FAERS Safety Report 9658948 (Version 1)
Quarter: 2013Q4

REPORT INFORMATION
  Report Type: Spontaneous
  Country: BE (occurrence: BE)
  Receive Date: 20131031
  Receipt Date: 20131031
  Transmission Date: 20140711
  Serious: Yes (Hospitalization, Other)
  Sender: FDA-Public Use
  Company Number: BE-AMGEN-BELSP2013076276

PATIENT
  Age: 71 Year
  Sex: Female

DRUGS (1)
  1. ENBREL [Suspect]
     Indication: PRODUCT USED FOR UNKNOWN INDICATION
     Dosage: UNK
     Route: 058

REACTIONS (7)
  - Fluid retention [Unknown]
  - Face oedema [Unknown]
  - Oedema peripheral [Unknown]
  - Abdominal distension [Unknown]
  - Heart rate decreased [Unknown]
  - Hypersensitivity [Unknown]
  - Cardiac failure [Unknown]
